FAERS Safety Report 5458426-3 (Version None)
Quarter: 2007Q3

REPORT INFORMATION
  Report Type: 
  Country: None (occurrence: None)
  Receive Date: 20070919
  Receipt Date: 20070326
  Transmission Date: 20080115
  Serious: No
  Sender: FDA-Public Use
  Company Number: US-ASTRAZENECA-2007UW06087

PATIENT
  Sex: Male

DRUGS (7)
  1. SEROQUEL [Suspect]
     Indication: DEPRESSION
     Route: 048
  2. METFORMIN HCL [Concomitant]
  3. DIOVAN [Concomitant]
  4. WELLBUTRIN [Concomitant]
  5. JANUVIA [Concomitant]
  6. LOTREL [Concomitant]
  7. CRESTOR [Concomitant]
     Route: 048

REACTIONS (2)
  - FATIGUE [None]
  - SOMNOLENCE [None]
